FAERS Safety Report 9249905 (Version 1)
Quarter: 2013Q2

REPORT INFORMATION
  Report Type: Report from Study
  Country: PH (occurrence: PH)
  Receive Date: 20130423
  Receipt Date: 20130423
  Transmission Date: 20140414
  Serious: Yes (Other)
  Sender: FDA-Public Use
  Company Number: PHHY2013PH039326

PATIENT
  Sex: Male

DRUGS (2)
  1. TASIGNA [Suspect]
     Indication: CHRONIC MYELOID LEUKAEMIA
     Dosage: 800 MG, DAILY
     Route: 048
  2. TASIGNA [Suspect]
     Dosage: 400 MG,DAILY
     Route: 048

REACTIONS (5)
  - Cerebrovascular accident [Unknown]
  - Pancytopenia [Unknown]
  - Haemorrhage [Unknown]
  - Haematotoxicity [Unknown]
  - Blood creatinine increased [Unknown]
